FAERS Safety Report 9315425 (Version 1)
Quarter: 2013Q2

REPORT INFORMATION
  Report Type: Spontaneous
  Country: US (occurrence: US)
  Receive Date: 20130529
  Receipt Date: 20130529
  Transmission Date: 20140414
  Serious: No
  Sender: FDA-Public Use
  Company Number: US-ASTRAZENECA-2013SE34773

PATIENT
  Age: 43 Year
  Sex: Male
  Weight: 108.9 kg

DRUGS (3)
  1. SEROQUEL XR [Suspect]
     Indication: BIPOLAR I DISORDER
     Route: 048
     Dates: start: 2012, end: 20130513
  2. LAMICTAL [Concomitant]
     Indication: BIPOLAR I DISORDER
     Dates: start: 2013
  3. TRAMADOL [Concomitant]
     Indication: PAIN
     Dates: start: 2012

REACTIONS (5)
  - Disturbance in attention [Not Recovered/Not Resolved]
  - Paraesthesia [Not Recovered/Not Resolved]
  - Malaise [Not Recovered/Not Resolved]
  - Irritability [Not Recovered/Not Resolved]
  - Intentional drug misuse [Unknown]
